FAERS Safety Report 20006830 (Version 1)
Quarter: 2021Q4

REPORT INFORMATION
  Report Type: Spontaneous
  Country: US (occurrence: US)
  Receive Date: 20211028
  Receipt Date: 20211028
  Transmission Date: 20220303
  Serious: Yes (Other)
  Sender: FDA-Public Use
  Company Number: 2021A781576

PATIENT
  Sex: Female

DRUGS (3)
  1. FARXIGA [Suspect]
     Active Substance: DAPAGLIFLOZIN PROPANEDIOL
     Dosage: UNKNOWN
     Route: 048
  2. FARXIGA [Suspect]
     Active Substance: DAPAGLIFLOZIN PROPANEDIOL
     Dosage: UNKNOWN
     Route: 048
  3. ONGLYZA [Suspect]
     Active Substance: SAXAGLIPTIN HYDROCHLORIDE
     Dosage: UNKNOWN
     Route: 048

REACTIONS (14)
  - Cardiac failure congestive [Unknown]
  - Cardiac valve disease [Unknown]
  - Pain [Recovering/Resolving]
  - Loss of consciousness [Unknown]
  - Alopecia [Unknown]
  - Dehydration [Not Recovered/Not Resolved]
  - Fungal infection [Unknown]
  - Dysuria [Unknown]
  - Feeling abnormal [Unknown]
  - Rhinorrhoea [Unknown]
  - Sleep disorder [Unknown]
  - Urinary tract infection [Unknown]
  - Drug ineffective [Unknown]
  - Product complaint [Unknown]
